FAERS Safety Report 4330026-8 (Version None)
Quarter: 2004Q1

REPORT INFORMATION
  Report Type: 
  Country: None (occurrence: None)
  Receive Date: 20040329
  Receipt Date: 20040317
  Transmission Date: 20041129
  Serious: Yes (Life-Threatening, Hospitalization)
  Sender: FDA-Public Use
  Company Number: 2004SE01559

PATIENT
  Age: 65 Year
  Sex: Male

DRUGS (5)
  1. ROSUVASTATIN [Suspect]
     Indication: HYPERCHOLESTEROLAEMIA
     Dosage: 10 MG PO
     Route: 048
     Dates: start: 20040310
  2. METFORMIN HCL [Concomitant]
  3. INSULINE PENFILL [Concomitant]
  4. VARFINE [Concomitant]
  5. BETASERC [Concomitant]

REACTIONS (2)
  - ACUTE MYOCARDIAL INFARCTION [None]
  - ANXIETY [None]
